FAERS Safety Report 5107070-6 (Version None)
Quarter: 2006Q3

REPORT INFORMATION
  Report Type: 
  Country: None (occurrence: None)
  Receive Date: 20060913
  Receipt Date: 20060831
  Transmission Date: 20061208
  Serious: No
  Sender: FDA-Public Use
  Company Number: HQWYE265001SEP06

PATIENT
  Sex: Female

DRUGS (1)
  1. TYGACIL [Suspect]
     Dosage: 3 DOSES

REACTIONS (5)
  - ABDOMINAL INFECTION [None]
  - DRUG INEFFECTIVE [None]
  - ESCHERICHIA URINARY TRACT INFECTION [None]
  - FOOT AMPUTATION [None]
  - SEPTIC SHOCK [None]
